FAERS Safety Report 11088160 (Version 1)
Quarter: 2015Q2

REPORT INFORMATION
  Report Type: Spontaneous
  Country: JP (occurrence: JP)
  Receive Date: 20150504
  Receipt Date: 20150504
  Transmission Date: 20150821
  Serious: Yes (Other)
  Sender: FDA-Public Use
  Company Number: JP-JNJFOC-20150420755

PATIENT

DRUGS (3)
  1. RIBAVIRIN. [Concomitant]
     Active Substance: RIBAVIRIN
     Indication: CHRONIC HEPATITIS C
     Route: 048
  2. PEGINTERFERON ALFA-2A [Concomitant]
     Active Substance: PEGINTERFERON ALFA-2A
     Indication: CHRONIC HEPATITIS C
     Route: 058
  3. SOVRIAD [Suspect]
     Active Substance: SIMEPREVIR
     Indication: CHRONIC HEPATITIS C
     Route: 048

REACTIONS (12)
  - Blood bilirubin increased [Unknown]
  - Insomnia [Unknown]
  - Malaise [Unknown]
  - Pneumonia [Unknown]
  - Retinopathy [Unknown]
  - Blood count abnormal [Unknown]
  - Rash [Unknown]
  - Decreased appetite [Unknown]
  - Hepatitis C RNA increased [Unknown]
  - Pyrexia [Unknown]
  - Depression [Unknown]
  - Photosensitivity reaction [Unknown]
